FAERS Safety Report 9116157 (Version 1)
Quarter: 2013Q1

REPORT INFORMATION
  Report Type: Spontaneous
  Country: None (occurrence: US)
  Receive Date: 20130225
  Receipt Date: 20130225
  Transmission Date: 20140127
  Serious: No
  Sender: FDA-Public Use
  Company Number: US-ENDO PHARMACEUTICALS INC.-FORT20120226

PATIENT
  Sex: Male

DRUGS (2)
  1. FORTESTA [Suspect]
     Indication: BLOOD TESTOSTERONE DECREASED
     Dosage: 120 MG
     Route: 061
     Dates: start: 201209
  2. FORTESTA [Suspect]
     Route: 061
     Dates: start: 201208, end: 201209

REACTIONS (3)
  - Prescribed overdose [Not Recovered/Not Resolved]
  - Application site rash [Not Recovered/Not Resolved]
  - Drug ineffective [Not Recovered/Not Resolved]
